FAERS Safety Report 9877113 (Version 2)
Quarter: 2014Q2

REPORT INFORMATION
  Report Type: Report from Study
  Country: US (occurrence: US)
  Receive Date: 20140206
  Receipt Date: 20140508
  Transmission Date: 20141212
  Serious: Yes (Hospitalization)
  Sender: FDA-Public Use
  Company Number: US-JNJFOC-20140200012

PATIENT
  Age: 11 Year
  Sex: Male
  Weight: 32.4 kg

DRUGS (11)
  1. REMICADE [Suspect]
     Indication: INFLAMMATORY BOWEL DISEASE
     Route: 042
     Dates: start: 20140312
  2. REMICADE [Suspect]
     Indication: INFLAMMATORY BOWEL DISEASE
     Route: 042
     Dates: start: 20130711
  3. 5-ASA [Concomitant]
     Route: 048
  4. PREDNISONE [Concomitant]
     Route: 065
  5. SINGULAIR [Concomitant]
     Route: 065
  6. TYLENOL [Concomitant]
     Route: 065
  7. MULTIVITAMINS [Concomitant]
     Route: 065
  8. VITAMIN D3 [Concomitant]
     Route: 065
  9. FERROUS SULFATE [Concomitant]
     Route: 065
  10. HYOSCYAMINE [Concomitant]
     Route: 065
  11. OMEPRAZOLE [Concomitant]
     Route: 065

REACTIONS (5)
  - Intestinal ischaemia [Recovered/Resolved with Sequelae]
  - Ileal stenosis [Recovered/Resolved with Sequelae]
  - Gastrointestinal fistula [Recovered/Resolved with Sequelae]
  - Vitello-intestinal duct remnant [Recovered/Resolved]
  - Intestinal obstruction [Recovered/Resolved with Sequelae]
